FAERS Safety Report 8203401-9 (Version None)
Quarter: 2012Q1

REPORT INFORMATION
  Report Type: 
  Country: None (occurrence: None)
  Receive Date: 20120312
  Receipt Date: 20120302
  Transmission Date: 20120608
  Serious: Yes (Hospitalization, Other)
  Sender: FDA-Public Use
  Company Number: US-ASTRAZENECA-2011SE22029

PATIENT
  Age: 54 Year
  Sex: Female
  Weight: 65.3 kg

DRUGS (80)
  1. SEROQUEL [Suspect]
     Indication: DEPRESSION
     Route: 048
     Dates: start: 19940101
  2. SEROQUEL [Suspect]
     Route: 048
  3. SEROQUEL [Suspect]
     Route: 048
  4. SEROQUEL [Suspect]
     Route: 048
  5. SEROQUEL [Suspect]
     Route: 048
  6. SEROQUEL [Suspect]
     Route: 048
     Dates: start: 20120201
  7. SEROQUEL [Suspect]
     Route: 048
     Dates: start: 20120201
  8. SEROQUEL [Suspect]
     Route: 048
     Dates: start: 20120201
  9. ATENOLOL [Concomitant]
     Indication: CARDIAC DISORDER
     Route: 048
  10. VALIUM [Concomitant]
     Indication: AGITATION
     Route: 048
  11. ZANTAC [Concomitant]
     Dosage: 150 MG, TWO TIMES A DAY
     Route: 048
  12. ZANAFLEX [Concomitant]
     Indication: EPILEPSY
     Route: 048
  13. LASIX [Concomitant]
  14. FERROUS SULFATE TAB [Concomitant]
  15. NEXIUM [Suspect]
     Indication: ULCER
     Route: 048
  16. NEXIUM [Suspect]
     Route: 048
  17. SEROQUEL [Suspect]
     Indication: AFFECTIVE DISORDER
     Route: 048
     Dates: start: 19940101
  18. SEROQUEL [Suspect]
     Route: 048
  19. SEROQUEL [Suspect]
     Route: 048
  20. SEROQUEL [Suspect]
     Route: 048
  21. SEROQUEL [Suspect]
     Route: 048
  22. SEROQUEL [Suspect]
     Route: 048
  23. SEROQUEL [Suspect]
     Route: 048
  24. SEROQUEL [Suspect]
     Route: 048
  25. DEPAKOTE [Concomitant]
     Indication: EPILEPSY
     Route: 048
  26. FOLIC ACID [Concomitant]
     Indication: CARDIAC DISORDER
     Route: 048
  27. SIMVASTATIN [Concomitant]
  28. LASIX [Concomitant]
  29. TANZANADINE [Concomitant]
     Dosage: THREE TIMES A DAY
     Route: 048
  30. ZENOGRAN [Concomitant]
     Indication: EPILEPSY
     Route: 048
  31. NEXIUM [Suspect]
     Route: 048
  32. SEROQUEL [Suspect]
     Indication: ANXIETY
     Route: 048
     Dates: start: 19940101
  33. SEROQUEL [Suspect]
     Route: 048
  34. SEROQUEL [Suspect]
     Route: 048
  35. HYDROXYZINE [Concomitant]
  36. ZANAFLEX [Concomitant]
     Indication: HEADACHE
     Route: 048
  37. VITAMIN TAB [Concomitant]
  38. SEROQUEL [Suspect]
     Indication: BIPOLAR DISORDER
     Route: 048
     Dates: start: 19940101
  39. SEROQUEL [Suspect]
     Indication: SLEEP DISORDER
     Route: 048
     Dates: start: 19940101
  40. SEROQUEL [Suspect]
     Route: 048
  41. SEROQUEL [Suspect]
     Route: 048
  42. SEROQUEL [Suspect]
     Route: 048
  43. SEROQUEL [Suspect]
     Route: 048
  44. SEROQUEL [Suspect]
     Route: 048
  45. CLONAZEPAM [Concomitant]
  46. ZINC SULFATE [Concomitant]
     Indication: ALOPECIA
     Route: 048
  47. ZONISANIDE [Concomitant]
  48. PRISTIQ [Concomitant]
     Indication: NEUROSIS
     Route: 048
  49. PRILOSEC OTC [Suspect]
     Route: 048
  50. SEROQUEL [Suspect]
     Route: 048
  51. SEROQUEL [Suspect]
     Route: 048
  52. SEROQUEL [Suspect]
     Route: 048
  53. SEROQUEL [Suspect]
     Route: 048
  54. SEROQUEL [Suspect]
     Route: 048
  55. SEROQUEL [Suspect]
     Route: 048
  56. SEROQUEL [Suspect]
     Route: 048
  57. SEROQUEL [Suspect]
     Route: 048
  58. VIMPAC [Concomitant]
     Route: 048
  59. NEXIUM [Suspect]
     Indication: GASTROOESOPHAGEAL REFLUX DISEASE
     Route: 048
  60. SEROQUEL [Suspect]
     Indication: SCHIZOPHRENIA
     Route: 048
     Dates: start: 19940101
  61. SEROQUEL [Suspect]
     Route: 048
     Dates: start: 19940101
  62. SEROQUEL [Suspect]
     Route: 048
  63. SEROQUEL [Suspect]
     Route: 048
     Dates: start: 20120201
  64. SEROQUEL [Suspect]
     Route: 048
     Dates: start: 20120201
  65. ZENOGRAN [Concomitant]
     Indication: HEADACHE
     Route: 048
  66. DIVALPROEX SODIUM [Concomitant]
     Indication: EPILEPSY
  67. TENORMIN [Concomitant]
  68. SEROQUEL [Suspect]
     Indication: PERSONALITY DISORDER
     Route: 048
     Dates: start: 19940101
  69. SEROQUEL [Suspect]
     Route: 048
  70. SEROQUEL [Suspect]
     Route: 048
  71. SEROQUEL [Suspect]
     Route: 048
  72. SEROQUEL [Suspect]
     Route: 048
     Dates: start: 20120201
  73. EFFEXOR [Concomitant]
  74. POTASSIUM [Concomitant]
  75. SEROQUEL [Suspect]
     Route: 048
  76. SEROQUEL [Suspect]
     Route: 048
  77. SEROQUEL [Suspect]
     Route: 048
     Dates: start: 20120201
  78. SEROQUEL [Suspect]
     Route: 048
     Dates: start: 20120201
  79. VIMPAC [Concomitant]
     Indication: EPILEPSY
     Dosage: 300 MG, TWO TIMES A DAY
     Route: 048
  80. POTASSIUM CHLORIDE [Concomitant]

REACTIONS (24)
  - LIGAMENT RUPTURE [None]
  - DRUG DOSE OMISSION [None]
  - ULCER [None]
  - SCHIZOPHRENIA, PARANOID TYPE [None]
  - FEELING ABNORMAL [None]
  - INSOMNIA [None]
  - FALL [None]
  - CARDIAC DISORDER [None]
  - INCORRECT DOSE ADMINISTERED [None]
  - BIPOLAR DISORDER [None]
  - TENDON RUPTURE [None]
  - CONVULSION [None]
  - WEIGHT DECREASED [None]
  - IMPAIRED DRIVING ABILITY [None]
  - OFF LABEL USE [None]
  - GASTROOESOPHAGEAL REFLUX DISEASE [None]
  - DEPRESSION [None]
  - HALLUCINATION, AUDITORY [None]
  - MYOCARDIAL INFARCTION [None]
  - ABDOMINAL PAIN UPPER [None]
  - CLAVICLE FRACTURE [None]
  - UPPER LIMB FRACTURE [None]
  - WRONG TECHNIQUE IN DRUG USAGE PROCESS [None]
  - VOMITING [None]
